FAERS Safety Report 8771262 (Version 2)
Quarter: 2012Q4

REPORT INFORMATION
  Report Type: 
  Country: BR (occurrence: BR)
  Receive Date: 20120906
  Receipt Date: 20120912
  Transmission Date: 20130627
  Serious: Yes (Other)
  Sender: FDA-Public Use
  Company Number: PHHY2012BR076588

PATIENT
  Sex: Female

DRUGS (8)
  1. DIOVAN HCT [Suspect]
     Indication: BLOOD PRESSURE
     Dosage: 1 DF QD
     Route: 048
  2. DIOVAN [Suspect]
     Indication: BLOOD PRESSURE
  3. FORASEQ [Suspect]
     Indication: ASTHMA
     Dosage: UNK, BID
  4. SELOZOK [Concomitant]
  5. CHLORTHALIDONE [Concomitant]
  6. MICARDIS [Concomitant]
  7. PLURAIR [Concomitant]
  8. LEVOCETIRIZINE DIHYDROCHLORIDE [Concomitant]

REACTIONS (4)
  - Diverticulitis [Not Recovered/Not Resolved]
  - Wheezing [Not Recovered/Not Resolved]
  - Dyspnoea [Not Recovered/Not Resolved]
  - Asthma [None]
